FAERS Safety Report 19050836 (Version 3)
Quarter: 2024Q4

REPORT INFORMATION
  Report Type: Spontaneous
  Country: FR (occurrence: FR)
  Receive Date: 20210324
  Receipt Date: 20241210
  Transmission Date: 20250115
  Serious: Yes (Other)
  Sender: AUROBINDO
  Company Number: FR-PFM-2021-01101

PATIENT
  Age: 56 Year
  Sex: Male

DRUGS (7)
  1. AZITHROMYCIN [Interacting]
     Active Substance: AZITHROMYCIN
     Indication: Dental caries
     Dosage: UNK
     Route: 065
  2. AZITHROMYCIN [Interacting]
     Active Substance: AZITHROMYCIN
     Indication: Pulpitis dental
     Dosage: UNK, 3 DAYS OF TREATMENT
     Route: 065
  3. BRAFTOVI [Interacting]
     Active Substance: ENCORAFENIB
     Indication: Metastatic malignant melanoma
     Dosage: 450 MILLIGRAM, ONCE A DAY
     Route: 065
     Dates: start: 2020
  4. BRAFTOVI [Interacting]
     Active Substance: ENCORAFENIB
     Dosage: 450 MILLIGRAM, ONCE A DAY
     Route: 065
     Dates: start: 202005
  5. MEKTOVI [Suspect]
     Active Substance: BINIMETINIB
     Indication: Metastatic malignant melanoma
     Dosage: 45 MILLIGRAM, TWO TIMES A DAY
     Route: 065
     Dates: start: 2020
  6. MEKTOVI [Suspect]
     Active Substance: BINIMETINIB
     Dosage: 90 MILLIGRAM, ONCE A DAY (45 MG, BID (2/DAY)
     Route: 065
     Dates: start: 202005
  7. ZOLMITRIPTAN [Concomitant]
     Active Substance: ZOLMITRIPTAN
     Indication: Migraine
     Dosage: UNK
     Route: 065

REACTIONS (8)
  - Erectile dysfunction [Not Recovered/Not Resolved]
  - Diarrhoea [Not Recovered/Not Resolved]
  - Dental caries [Not Recovered/Not Resolved]
  - Headache [Not Recovered/Not Resolved]
  - Pulpitis dental [Not Recovered/Not Resolved]
  - Arthralgia [Unknown]
  - Hypercholesterolaemia [Recovered/Resolved]
  - Drug interaction [Unknown]

NARRATIVE: CASE EVENT DATE: 20200101
